FAERS Safety Report 9752114 (Version 2)
Quarter: 2013Q4

REPORT INFORMATION
  Report Type: Spontaneous
  Country: GB (occurrence: GB)
  Receive Date: 20131213
  Receipt Date: 20131213
  Transmission Date: 20140711
  Serious: Yes (Other)
  Sender: FDA-Public Use
  Company Number: PHFR2011GB02331

PATIENT
  Age: 51 Year
  Sex: Male

DRUGS (1)
  1. CLOZARIL [Suspect]
     Route: 048
     Dates: start: 20090720

REACTIONS (4)
  - Differential white blood cell count abnormal [Not Recovered/Not Resolved]
  - Aspartate aminotransferase increased [Recovering/Resolving]
  - Blood alkaline phosphatase increased [Unknown]
  - Neutropenia [Unknown]
